FAERS Safety Report 12541124 (Version 2)
Quarter: 2016Q3

REPORT INFORMATION
  Report Type: Report from Study
  Country: US (occurrence: US)
  Receive Date: 20160708
  Receipt Date: 20160718
  Transmission Date: 20161109
  Serious: Yes (Hospitalization, Other)
  Sender: FDA-Public Use
  Company Number: US-JNJFOC-20160703884

PATIENT
  Age: 51 Year
  Sex: Female

DRUGS (7)
  1. VITAMIN D [Concomitant]
     Active Substance: CHOLECALCIFEROL
  2. BUPROPION. [Concomitant]
     Active Substance: BUPROPION
  3. IMBRUVICA [Suspect]
     Active Substance: IBRUTINIB
     Indication: CHRONIC LYMPHOCYTIC LEUKAEMIA
     Route: 048
     Dates: start: 20150805
  4. PRAMIPEXOL [Concomitant]
     Active Substance: PRAMIPEXOLE
  5. CLONAZEPAM. [Concomitant]
     Active Substance: CLONAZEPAM
  6. TRAZODONE [Concomitant]
     Active Substance: TRAZODONE HYDROCHLORIDE
  7. CALCIUM [Concomitant]
     Active Substance: CALCIUM

REACTIONS (5)
  - Adverse event [Unknown]
  - Off label use [Not Recovered/Not Resolved]
  - Post procedural haemorrhage [Recovered/Resolved]
  - Incorrect dose administered [Not Recovered/Not Resolved]
  - Sinus operation [Unknown]

NARRATIVE: CASE EVENT DATE: 20150805
